FAERS Safety Report 16886628 (Version 1)
Quarter: 2019Q4

REPORT INFORMATION
  Report Type: Spontaneous
  Country: NL (occurrence: NL)
  Receive Date: 20191004
  Receipt Date: 20191004
  Transmission Date: 20200122
  Serious: Yes (Hospitalization)
  Sender: FDA-Public Use
  Company Number: NL-MYLANLABS-2019M1092066

PATIENT
  Age: 34 Year
  Sex: Female
  Weight: 58.2 kg

DRUGS (13)
  1. PLANTAGO                           /00029101/ [Concomitant]
     Dosage: 3 GRAM, QD, 1X PER DAG 1 ZAKJE VAN 3,6 GR
  2. DOMPERIDON                         /00498201/ [Concomitant]
     Active Substance: DOMPERIDONE
     Dosage: 10 MILLIGRAM, Q8H, 3X PER DAG 10MG 28-4-2019
     Dates: start: 20190428
  3. OXAZEPAM. [Concomitant]
     Active Substance: OXAZEPAM
     Dosage: 10 MILLIGRAM, BID, 2DD1
     Dates: end: 20190429
  4. COLCHICINE. [Suspect]
     Active Substance: COLCHICINE
     Indication: FAMILIAL MEDITERRANEAN FEVER
     Dosage: 1 PER DAG 1
     Route: 048
     Dates: start: 20190425, end: 20190430
  5. CARBAMAZEPINE. [Concomitant]
     Active Substance: CARBAMAZEPINE
     Dosage: 3X PER DAG 200MG
  6. CETIRIZINE [Concomitant]
     Active Substance: CETIRIZINE HYDROCHLORIDE
     Dosage: 1X PER DAG 10MG
  7. FRISIUM [Concomitant]
     Active Substance: CLOBAZAM
     Dosage: 1X PER DAG 0,5 VAN 10 MG
  8. MACROGOL [Concomitant]
     Active Substance: POLYETHYLENE GLYCOLS
     Dosage: 1 DOSAGE FORM, 1 TOT 2 SACHETS PER DAG
  9. COLECALCIFEROL [Concomitant]
     Active Substance: CHOLECALCIFEROL
     Dosage: 800 INTERNATIONAL UNIT, QD, 1X PER DAG 800IE
  10. PREDNISON [Concomitant]
     Active Substance: PREDNISONE
     Dosage: 1 DOSAGE FORM, MET AFBOUWSCHEMA VANAF 40MG
     Dates: start: 20190428
  11. BRIVIACT [Concomitant]
     Active Substance: BRIVARACETAM
     Dosage: 25 MILLIGRAM, Q8H, 3X PER DAG 25 MG
  12. OXYCODON [Concomitant]
     Active Substance: OXYCODONE
     Dosage: 10 MILLIGRAM, BID, 2DD1
     Dates: end: 20190430
  13. PANTOPRAZOL                        /01263201/ [Concomitant]
     Active Substance: PANTOPRAZOLE
     Dosage: 40 MILLIGRAM, QD, 1X PER DAG 40MG
     Dates: start: 20190428

REACTIONS (1)
  - Liver function test abnormal [Recovering/Resolving]

NARRATIVE: CASE EVENT DATE: 20190429
